FAERS Safety Report 20927906 (Version 1)
Quarter: 2022Q2

REPORT INFORMATION
  Report Type: Spontaneous
  Country: US (occurrence: US)
  Receive Date: 20220607
  Receipt Date: 20220607
  Transmission Date: 20220721
  Serious: Yes (Other)
  Sender: FDA-Public Use
  Company Number: US-Teikoku Pharma USA-TPU2022-00511

PATIENT
  Sex: Female

DRUGS (1)
  1. LIDODERM [Suspect]
     Active Substance: LIDOCAINE
     Indication: Pain
     Route: 061

REACTIONS (3)
  - Blindness [Not Recovered/Not Resolved]
  - Arthritis [Not Recovered/Not Resolved]
  - Spinal operation [Unknown]
